FAERS Safety Report 6820730-1 (Version None)
Quarter: 2010Q3

REPORT INFORMATION
  Report Type: 
  Country: None (occurrence: None)
  Receive Date: 20100707
  Receipt Date: 20070618
  Transmission Date: 20110219
  Serious: Yes (Hospitalization)
  Sender: FDA-Public Use
  Company Number: US-PFIZER INC-2007047606

PATIENT
  Sex: Female

DRUGS (2)
  1. SERTRALINE [Suspect]
     Indication: DEPRESSION
     Dates: start: 20070224
  2. ZOLOFT [Concomitant]
     Indication: DEPRESSION
     Dates: end: 20070223

REACTIONS (2)
  - DEPRESSION [None]
  - SUICIDAL IDEATION [None]
